FAERS Safety Report 8825131 (Version 2)
Quarter: 2012Q4

REPORT INFORMATION
  Report Type: 
  Country: US (occurrence: US)
  Receive Date: 20121004
  Receipt Date: 20121012
  Transmission Date: 20130627
  Serious: Yes (Other)
  Sender: FDA-Public Use
  Company Number: US-BAYER-2012-103342

PATIENT
  Sex: Female

DRUGS (3)
  1. YASMIN [Suspect]
     Indication: DYSMENORRHOEA
     Dosage: UNK
     Route: 048
     Dates: start: 2004, end: 201208
  2. YASMIN [Suspect]
     Indication: MENSTRUATION IRREGULAR
  3. YASMIN [Suspect]
     Indication: CONTRACEPTION

REACTIONS (5)
  - Autoimmune disorder [None]
  - Thyroid disorder [None]
  - Weight increased [None]
  - Acne [None]
  - Depression [None]
